FAERS Safety Report 19782310 (Version 1)
Quarter: 2021Q3

REPORT INFORMATION
  Report Type: Spontaneous
  Country: JP (occurrence: JP)
  Receive Date: 20210902
  Receipt Date: 20210902
  Transmission Date: 20211014
  Serious: Yes (Hospitalization, Other)
  Sender: FDA-Public Use
  Company Number: JP-FERRINGPH-2021FE05643

PATIENT
  Age: 81 Year
  Sex: Male
  Weight: 49 kg

DRUGS (7)
  1. BELSOMRA [Concomitant]
     Active Substance: SUVOREXANT
     Dosage: 15 MG
     Route: 048
     Dates: end: 20210823
  2. CAMOSTAT MESILATE [Concomitant]
     Active Substance: CAMOSTAT MESYLATE
     Dosage: 100 MG
     Route: 048
     Dates: end: 20210823
  3. TAKECAB [Concomitant]
     Active Substance: VONOPRAZAN FUMARATE
     Dosage: 20 MG
     Route: 048
  4. SENNOSIDE [Concomitant]
     Active Substance: SENNOSIDES
     Dosage: 12 MG
     Route: 048
     Dates: end: 20210823
  5. MINIRINMELT [Suspect]
     Active Substance: DESMOPRESSIN ACETATE
     Indication: NOCTURIA
     Dosage: 25 UG
     Route: 048
     Dates: start: 20210420, end: 20210622
  6. MINIRINMELT [Suspect]
     Active Substance: DESMOPRESSIN ACETATE
     Dosage: 50 UG
     Route: 048
     Dates: start: 20210623, end: 20210822
  7. ZOLPIDEM TARTRATE. [Concomitant]
     Active Substance: ZOLPIDEM TARTRATE
     Dosage: 10 MG
     Route: 048

REACTIONS (6)
  - Spinal compression fracture [Unknown]
  - Hyponatraemia [Not Recovered/Not Resolved]
  - Spinal compression fracture [Unknown]
  - Decreased appetite [Recovering/Resolving]
  - Cognitive disorder [Recovering/Resolving]
  - Altered state of consciousness [Unknown]

NARRATIVE: CASE EVENT DATE: 20210801
